FAERS Safety Report 5680643-8 (Version None)
Quarter: 2008Q1

REPORT INFORMATION
  Report Type: 
  Country: None (occurrence: None)
  Receive Date: 20080326
  Receipt Date: 20080123
  Transmission Date: 20080703
  Serious: No
  Sender: FDA-Public Use
  Company Number: A0704903A

PATIENT
  Age: 17 Year
  Sex: Female

DRUGS (1)
  1. FLOVENT [Suspect]
     Indication: EOSINOPHILIA
     Route: 055

REACTIONS (1)
  - CYANOSIS [None]
